FAERS Safety Report 11627785 (Version 10)
Quarter: 2017Q1

REPORT INFORMATION
  Report Type: Spontaneous
  Country: CA (occurrence: CA)
  Receive Date: 20151014
  Receipt Date: 20170123
  Transmission Date: 20170428
  Serious: Yes (Other)
  Sender: FDA-Public Use
  Company Number: CA-ROCHE-1645417

PATIENT
  Age: 65 Year
  Sex: Female

DRUGS (20)
  1. XOLAIR [Suspect]
     Active Substance: OMALIZUMAB
     Indication: ASTHMA
     Dosage: 150 MG, EVERY 4 WEEKS
     Route: 058
     Dates: start: 20130124
  2. XOLAIR [Suspect]
     Active Substance: OMALIZUMAB
     Dosage: UNK
     Route: 058
     Dates: start: 20131030
  3. ZENHALE [Concomitant]
     Active Substance: FORMOTEROL FUMARATE\MOMETASONE FUROATE
     Indication: PRODUCT USED FOR UNKNOWN INDICATION
     Dosage: UNK
     Route: 065
  4. XOLAIR [Suspect]
     Active Substance: OMALIZUMAB
     Dosage: UNK
     Route: 058
     Dates: start: 20160728
  5. XOLAIR [Suspect]
     Active Substance: OMALIZUMAB
     Route: 058
     Dates: start: 20161018
  6. SINGULAIR [Concomitant]
     Active Substance: MONTELUKAST SODIUM
     Indication: PRODUCT USED FOR UNKNOWN INDICATION
     Dosage: UNK
     Route: 065
  7. XOLAIR [Suspect]
     Active Substance: OMALIZUMAB
     Dosage: UNK
     Route: 058
     Dates: start: 20130516
  8. XOLAIR [Suspect]
     Active Substance: OMALIZUMAB
     Dosage: UNK
     Route: 058
     Dates: start: 20140121
  9. XOLAIR [Suspect]
     Active Substance: OMALIZUMAB
     Route: 058
     Dates: start: 20161117
  10. ALVESCO [Concomitant]
     Active Substance: CICLESONIDE
     Indication: PRODUCT USED FOR UNKNOWN INDICATION
     Dosage: UNK
     Route: 065
  11. XOLAIR [Suspect]
     Active Substance: OMALIZUMAB
     Dosage: UNK
     Route: 058
     Dates: start: 20150224
  12. XOLAIR [Suspect]
     Active Substance: OMALIZUMAB
     Dosage: UNK
     Route: 058
     Dates: start: 20160627
  13. XOLAIR [Suspect]
     Active Substance: OMALIZUMAB
     Dosage: UNK
     Route: 058
     Dates: start: 20160728
  14. VENTOLIN [Concomitant]
     Active Substance: ALBUTEROL SULFATE
     Indication: PRODUCT USED FOR UNKNOWN INDICATION
     Dosage: UNK
     Route: 065
  15. XOLAIR [Suspect]
     Active Substance: OMALIZUMAB
     Dosage: UNK
     Route: 058
     Dates: start: 20130711
  16. XOLAIR [Suspect]
     Active Substance: OMALIZUMAB
     Dosage: UNK
     Route: 058
     Dates: start: 20131126
  17. XOLAIR [Suspect]
     Active Substance: OMALIZUMAB
     Dosage: UNK
     Route: 058
     Dates: start: 20140218
  18. XOLAIR [Suspect]
     Active Substance: OMALIZUMAB
     Dosage: UNK
     Route: 058
     Dates: start: 20150519, end: 2015
  19. XOLAIR [Suspect]
     Active Substance: OMALIZUMAB
     Dosage: UNK
     Route: 058
     Dates: start: 20160728
  20. SPIRIVA [Concomitant]
     Active Substance: TIOTROPIUM BROMIDE MONOHYDRATE
     Indication: PRODUCT USED FOR UNKNOWN INDICATION
     Dosage: UNK
     Route: 065

REACTIONS (54)
  - Spider vein [Unknown]
  - Urticaria [Unknown]
  - Cough [Unknown]
  - Pain in extremity [Unknown]
  - Oropharyngeal pain [Unknown]
  - Formication [Unknown]
  - Dizziness [Unknown]
  - Haemoptysis [Unknown]
  - Haematoma [Unknown]
  - Wheezing [Unknown]
  - Laceration [Not Recovered/Not Resolved]
  - Pneumonia [Unknown]
  - Epistaxis [Unknown]
  - Malaise [Recovered/Resolved]
  - Lymphadenopathy [Unknown]
  - Peripheral vascular disorder [Unknown]
  - Loss of consciousness [Unknown]
  - Fatigue [Unknown]
  - Visual impairment [Unknown]
  - Skin atrophy [Unknown]
  - Upper respiratory tract infection [Unknown]
  - Anaphylactoid reaction [Unknown]
  - Rash [Recovering/Resolving]
  - Headache [Unknown]
  - Faeces discoloured [Unknown]
  - Body temperature decreased [Not Recovered/Not Resolved]
  - Rib fracture [Unknown]
  - Dry throat [Unknown]
  - Incorrect drug administration rate [Unknown]
  - Musculoskeletal pain [Unknown]
  - Skin injury [Unknown]
  - Sinus congestion [Unknown]
  - Somnolence [Unknown]
  - Haemorrhage [Unknown]
  - Back pain [Not Recovered/Not Resolved]
  - Nasopharyngitis [Recovered/Resolved]
  - Gingival disorder [Unknown]
  - Head injury [Unknown]
  - Odynophagia [Unknown]
  - Injection site pruritus [Unknown]
  - Myalgia [Unknown]
  - Lacrimation increased [Unknown]
  - Joint swelling [Unknown]
  - Injection site reaction [Unknown]
  - Diarrhoea [Unknown]
  - Renal pain [Not Recovered/Not Resolved]
  - Incorrect route of drug administration [Unknown]
  - Facial bones fracture [Unknown]
  - Increased tendency to bruise [Not Recovered/Not Resolved]
  - Dyspnoea exertional [Unknown]
  - Fall [Unknown]
  - Laryngitis [Unknown]
  - Influenza [Unknown]
  - Impaired healing [Unknown]

NARRATIVE: CASE EVENT DATE: 20130223
